FAERS Safety Report 17508442 (Version 2)
Quarter: 2020Q1

REPORT INFORMATION
  Report Type: Spontaneous
  Country: US (occurrence: US)
  Receive Date: 20200306
  Receipt Date: 20200318
  Transmission Date: 20200409
  Serious: Yes (Other)
  Sender: FDA-Public Use
  Company Number: US-GW PHARMA-202003USGW00843

PATIENT

DRUGS (1)
  1. EPIDIOLEX [Suspect]
     Active Substance: CANNABIDIOL
     Indication: EPILEPSY
     Dosage: 22.5 MG/KG/DAY, 500 MILLIGRAM, BID
     Route: 048
     Dates: start: 201811

REACTIONS (5)
  - Blood follicle stimulating hormone increased [Unknown]
  - Fatigue [Unknown]
  - Leydig cell tumour of the testis [Unknown]
  - Breast disorder [Unknown]
  - Blood luteinising hormone increased [Unknown]

NARRATIVE: CASE EVENT DATE: 2019
